FAERS Safety Report 4417298-6 (Version None)
Quarter: 2004Q3

REPORT INFORMATION
  Report Type: 
  Country: None (occurrence: None)
  Receive Date: 20040802
  Receipt Date: 20040720
  Transmission Date: 20050211
  Serious: Yes (Hospitalization, Other)
  Sender: FDA-Public Use
  Company Number: USA-2004-0016157

PATIENT
  Sex: Female

DRUGS (9)
  1. OXYCONTIN [Suspect]
     Indication: PAIN
  2. COCAINE (COCAINE) [Concomitant]
  3. MAXALT [Concomitant]
  4. FLONASE [Concomitant]
  5. LOESTRIN 1.5/30 [Concomitant]
  6. ALLEGRA (FEXOFENIDINE HYDROCHLORIDE) [Concomitant]
  7. PRILOSEC [Concomitant]
  8. AMOXICILLIN [Concomitant]
  9. ZOLOFT [Concomitant]

REACTIONS (28)
  - AGGRESSION [None]
  - ANXIETY [None]
  - BIPOLAR DISORDER [None]
  - CONDITION AGGRAVATED [None]
  - CONFUSIONAL STATE [None]
  - DECREASED INTEREST [None]
  - DELUSION [None]
  - DEPRESSION [None]
  - DRUG DEPENDENCE [None]
  - DRUG WITHDRAWAL SYNDROME [None]
  - HEADACHE [None]
  - INSOMNIA [None]
  - IRRITABILITY [None]
  - MENTAL IMPAIRMENT [None]
  - MENTAL STATUS CHANGES [None]
  - NERVOUSNESS [None]
  - PAIN [None]
  - PARANOIA [None]
  - PHYSICAL ASSAULT [None]
  - POLYSUBSTANCE ABUSE [None]
  - PSYCHOTIC DISORDER [None]
  - REFUSAL OF TREATMENT BY PATIENT [None]
  - SCHIZOAFFECTIVE DISORDER [None]
  - SELF-INJURIOUS IDEATION [None]
  - SELF-MEDICATION [None]
  - SUICIDAL IDEATION [None]
  - TREMOR [None]
  - WEIGHT DECREASED [None]
